FAERS Safety Report 7753802-8 (Version None)
Quarter: 2011Q3

REPORT INFORMATION
  Report Type: 
  Country: None (occurrence: None)
  Receive Date: 20110915
  Receipt Date: 20110912
  Transmission Date: 20111222
  Serious: Yes (Hospitalization)
  Sender: FDA-Public Use
  Company Number: FR-MERCK-1109FRA00041

PATIENT
  Age: 67 Year
  Sex: Male

DRUGS (4)
  1. METFFORMIN HYDROCHLORIDE [Suspect]
     Indication: TYPE 2 DIABETES MELLITUS
     Route: 048
     Dates: start: 20110602, end: 20110722
  2. METFORMIN HCL [Suspect]
     Route: 048
     Dates: start: 20110401, end: 20110526
  3. JANUVIA [Suspect]
     Indication: TYPE 2 DIABETES MELLITUS
     Route: 048
     Dates: start: 20110401, end: 20110722
  4. ESOMEPRAZOLE MAGNESIUM [Concomitant]
     Indication: OESOPHAGITIS ULCERATIVE
     Route: 048
     Dates: start: 20110401

REACTIONS (3)
  - JAUNDICE [None]
  - HEPATIC STEATOSIS [None]
  - MIXED LIVER INJURY [None]
